FAERS Safety Report 9785990 (Version 1)
Quarter: 2013Q4

REPORT INFORMATION
  Report Type: Spontaneous
  Country: US (occurrence: None)
  Receive Date: 20131224
  Receipt Date: 20131224
  Transmission Date: 20140711
  Serious: Yes (Other)
  Sender: FDA-Public Use
  Company Number: 2013US00866

PATIENT
  Sex: 0

DRUGS (7)
  1. CARBOPLATIN [Suspect]
     Indication: PERIPHERAL T-CELL LYMPHOMA UNSPECIFIED
  2. CYCLOPHOSPHAMIDE (CYCLOPHOSPHAMIDE) [Suspect]
     Indication: PERIPHERAL T-CELL LYMPHOMA UNSPECIFIED
  3. DOXORUBICIN [Suspect]
     Indication: PERIPHERAL T-CELL LYMPHOMA UNSPECIFIED
  4. VINCRISTINE [Suspect]
     Indication: PERIPHERAL T-CELL LYMPHOMA UNSPECIFIED
  5. PREDNISONE (PREDNISONE) [Suspect]
     Indication: PERIPHERAL T-CELL LYMPHOMA UNSPECIFIED
  6. IFOSFAMIDE (IFOSFAMIDE) [Suspect]
     Indication: PERIPHERAL T-CELL LYMPHOMA UNSPECIFIED
  7. ETOPOSIDE (ETOPOSIDE) [Suspect]
     Indication: PERIPHERAL T-CELL LYMPHOMA UNSPECIFIED

REACTIONS (1)
  - Performance status decreased [None]
